FAERS Safety Report 9184857 (Version 3)
Quarter: 2017Q4

REPORT INFORMATION
  Report Type: Report from Study
  Country: CH (occurrence: CH)
  Receive Date: 20130325
  Receipt Date: 20171229
  Transmission Date: 20180321
  Serious: Yes (Other)
  Sender: FDA-Public Use
  Company Number: CH-ROCHE-1204244

PATIENT

DRUGS (4)
  1. CAPECITABINE. [Suspect]
     Active Substance: CAPECITABINE
     Indication: RECTAL CANCER
     Dosage: DURING 5 WEEKS
     Route: 065
  2. CAPECITABINE. [Suspect]
     Active Substance: CAPECITABINE
     Dosage: DURING 5 WEEKS
     Route: 065
  3. SORAFENIB [Suspect]
     Active Substance: SORAFENIB
     Indication: RECTAL CANCER
     Dosage: DURING 5 WEEKS
     Route: 065
  4. SORAFENIB [Suspect]
     Active Substance: SORAFENIB
     Dosage: DURING 5 WEEKS
     Route: 065

REACTIONS (20)
  - Fatigue [Unknown]
  - Arrhythmia [Unknown]
  - Diarrhoea [Unknown]
  - Hypocalcaemia [Unknown]
  - Rash [Unknown]
  - Neutropenia [Unknown]
  - Proctitis [Unknown]
  - Ileus [Unknown]
  - Palmar-plantar erythrodysaesthesia syndrome [Unknown]
  - Skin toxicity [Unknown]
  - Pain [Unknown]
  - Cystitis [Unknown]
  - Myocardial ischaemia [Unknown]
  - Lymphopenia [Unknown]
  - Blood creatinine increased [Unknown]
  - Urinary retention [Unknown]
  - Dermatitis [Unknown]
  - Enteritis [Unknown]
  - Nausea [Unknown]
  - Erythema multiforme [Unknown]
